FAERS Safety Report 7607539-6 (Version None)
Quarter: 2011Q3

REPORT INFORMATION
  Report Type: 
  Country: None (occurrence: None)
  Receive Date: 20110713
  Receipt Date: 20110711
  Transmission Date: 20111222
  Serious: Yes (Hospitalization)
  Sender: FDA-Public Use
  Company Number: IN-BAYER-2011-056751

PATIENT
  Age: 35 Year
  Sex: Male
  Weight: 83.3 kg

DRUGS (17)
  1. DEFCORT [Concomitant]
     Dosage: DAILY DOSE 7.5 MG
     Route: 048
     Dates: start: 20110620, end: 20110625
  2. ALBUTEROL [Concomitant]
     Indication: COUGH
     Route: 055
  3. PYRIDOXINE HCL [Concomitant]
     Indication: PULMONARY TUBERCULOSIS
     Dosage: DAILY DOSE 10 MG
     Route: 048
     Dates: start: 20110629
  4. FAROPENEM [Concomitant]
     Dosage: DAILY DOSE 200 MG
     Route: 048
     Dates: start: 20110620, end: 20110623
  5. ECOSPRIN [Concomitant]
     Dosage: UNK
  6. PYRAZINAMIDE [Suspect]
     Dosage: UNK
     Route: 048
     Dates: start: 20110629
  7. ISONIAZID [Suspect]
     Dosage: UNK
     Route: 048
     Dates: start: 20110629
  8. BUDECORT [Concomitant]
     Indication: COUGH
     Route: 055
  9. RIFAMPICIN [Suspect]
     Dosage: UNK
     Route: 048
     Dates: start: 20110629
  10. BIFILAC [Concomitant]
     Indication: PULMONARY TUBERCULOSIS
     Dosage: UNK
     Route: 048
     Dates: start: 20110629
  11. MOXIFLOXACIN [Suspect]
     Indication: PULMONARY TUBERCULOSIS
     Dosage: 400 MG, UNK
     Dates: start: 20110623, end: 20110628
  12. ETHAMBUTOL HYDROCHLORIDE [Concomitant]
     Indication: PULMONARY TUBERCULOSIS
     Dosage: DAILY DOSE 1200 MG
     Route: 048
     Dates: start: 20110629
  13. CODEINE SUL TAB [Suspect]
     Dosage: UNK
     Dates: start: 20110629
  14. RIFAMPICIN [Suspect]
     Indication: PULMONARY TUBERCULOSIS
     Dosage: DAILY DOSE 600 MG
     Route: 048
     Dates: start: 20110623, end: 20110628
  15. PYRAZINAMIDE [Suspect]
     Indication: PULMONARY TUBERCULOSIS
     Dosage: DAILY DOSE 2000 MG
     Route: 048
     Dates: start: 20110623, end: 20110628
  16. ISONIAZID [Suspect]
     Indication: PULMONARY TUBERCULOSIS
     Dosage: DAILY DOSE 300 MG
     Route: 048
     Dates: start: 20110623, end: 20110628
  17. STREPTOMYCIN [Concomitant]
     Indication: PULMONARY TUBERCULOSIS
     Dosage: UNK
     Route: 048
     Dates: start: 20110629

REACTIONS (6)
  - COUGH [None]
  - PYREXIA [None]
  - HEPATOSPLENOMEGALY [None]
  - WEIGHT DECREASED [None]
  - CHOLELITHIASIS [None]
  - ATRIAL TACHYCARDIA [None]
